FAERS Safety Report 15203445 (Version 2)
Quarter: 2018Q3

REPORT INFORMATION
  Report Type: Spontaneous
  Country: JP (occurrence: JP)
  Receive Date: 20180726
  Receipt Date: 20180821
  Transmission Date: 20181010
  Serious: Yes (Death, Hospitalization, Other)
  Sender: FDA-Public Use
  Company Number: JP-NAPPMUNDI-GBR-2018-0057853

PATIENT
  Age: 52 Year
  Sex: Male

DRUGS (2)
  1. OXIFAST [Suspect]
     Active Substance: OXYCODONE
     Indication: PAIN
     Dosage: 350 MG, DAILY
     Route: 042
  2. PREGABALIN. [Concomitant]
     Active Substance: PREGABALIN
     Indication: PAIN

REACTIONS (3)
  - Condition aggravated [Unknown]
  - Death [Fatal]
  - Drug dependence [Recovered/Resolved]
